FAERS Safety Report 8769432 (Version 1)
Quarter: 2012Q4

REPORT INFORMATION
  Report Type: 
  Country: DE (occurrence: DE)
  Receive Date: 20120905
  Receipt Date: 20120905
  Transmission Date: 20130627
  Serious: Yes (Other)
  Sender: FDA-Public Use
  Company Number: DE-ASTRAZENECA-2012SE65192

PATIENT
  Sex: Female
  Weight: 75 kg

DRUGS (7)
  1. SEROQUEL PROLONG [Suspect]
     Indication: BORDERLINE PERSONALITY DISORDER
     Route: 048
     Dates: start: 20110916
  2. SEROQUEL PROLONG [Suspect]
     Indication: ANXIETY DISORDER
     Route: 048
     Dates: start: 20110916
  3. SEROQUEL PROLONG [Suspect]
     Indication: BORDERLINE PERSONALITY DISORDER
     Route: 048
  4. SEROQUEL PROLONG [Suspect]
     Indication: ANXIETY DISORDER
     Route: 048
  5. SEROQUEL PROLONG [Suspect]
     Indication: BORDERLINE PERSONALITY DISORDER
     Route: 048
     Dates: end: 20120216
  6. SEROQUEL PROLONG [Suspect]
     Indication: ANXIETY DISORDER
     Route: 048
     Dates: end: 20120216
  7. FOLS?URE [Concomitant]
     Indication: PROPHYLAXIS OF NEURAL TUBE DEFECT
     Route: 048
     Dates: start: 20110916, end: 20120216

REACTIONS (3)
  - Exposure during pregnancy [Unknown]
  - Abortion late [Recovered/Resolved]
  - Influenza like illness [Unknown]
